FAERS Safety Report 13127084 (Version 1)
Quarter: 2017Q1

REPORT INFORMATION
  Report Type: Spontaneous
  Country: US (occurrence: US)
  Receive Date: 20170118
  Receipt Date: 20170118
  Transmission Date: 20170428
  Serious: No
  Sender: FDA-Public Use
  Company Number: US-ROCHE-1846448

PATIENT
  Sex: Male

DRUGS (1)
  1. RITUXAN [Suspect]
     Active Substance: RITUXIMAB
     Indication: CHRONIC LYMPHOCYTIC LEUKAEMIA
     Dosage: CHRONIC LYMPHOCYTIC OF THE B CELL NOT ACHIEVED IN REMISSION
     Route: 065
     Dates: start: 20161025

REACTIONS (2)
  - Tremor [Unknown]
  - Abdominal pain upper [Unknown]
